FAERS Safety Report 12838104 (Version 2)
Quarter: 2017Q2

REPORT INFORMATION
  Report Type: Report from Study
  Country: US (occurrence: US)
  Receive Date: 20161012
  Receipt Date: 20170615
  Transmission Date: 20170830
  Serious: Yes (Other)
  Sender: FDA-Public Use
  Company Number: US-009507513-1609USA012423

PATIENT
  Age: 27 Year
  Sex: Female
  Weight: 66.21 kg

DRUGS (1)
  1. IMPLANON [Suspect]
     Active Substance: ETONOGESTREL
     Dosage: 1 DF, UNK
     Route: 059
     Dates: start: 20151008, end: 20160923

REACTIONS (4)
  - Pregnancy with implant contraceptive [Not Recovered/Not Resolved]
  - Medical device removal [Unknown]
  - Unintended pregnancy [Not Recovered/Not Resolved]
  - Menstruation irregular [Recovered/Resolved]

NARRATIVE: CASE EVENT DATE: 201609
